FAERS Safety Report 4281362-5 (Version None)
Quarter: 2004Q1

REPORT INFORMATION
  Report Type: 
  Country: None (occurrence: None)
  Receive Date: 20040129
  Receipt Date: 20040123
  Transmission Date: 20041129
  Serious: Yes (Life-Threatening, Hospitalization)
  Sender: FDA-Public Use
  Company Number: ES-ROCHE-356881

PATIENT
  Age: 76 Year
  Sex: Female

DRUGS (7)
  1. SUTRIL [Suspect]
     Indication: DRUG USE FOR UNKNOWN INDICATION
     Route: 048
     Dates: start: 20030409, end: 20030424
  2. ALDACTONE [Suspect]
     Indication: DRUG USE FOR UNKNOWN INDICATION
     Route: 048
     Dates: start: 20030409, end: 20030424
  3. SINTROM [Concomitant]
     Dosage: LONG TERM.
     Route: 048
  4. DIGOXIN [Concomitant]
     Dosage: LONG TERM.
     Route: 048
  5. SEROQUEL [Concomitant]
     Route: 048
     Dates: start: 20030310
  6. DISTRANEURINE [Concomitant]
     Route: 048
     Dates: start: 20030310
  7. SEROXAT [Concomitant]
     Route: 048
     Dates: start: 20030310

REACTIONS (2)
  - HYPONATRAEMIA [None]
  - RENAL FAILURE ACUTE [None]
